FAERS Safety Report 15403612 (Version 2)
Quarter: 2018Q4

REPORT INFORMATION
  Report Type: Spontaneous
  Country: JP (occurrence: JP)
  Receive Date: 20180919
  Receipt Date: 20181116
  Transmission Date: 20190204
  Serious: Yes (Other)
  Sender: FDA-Public Use
  Company Number: JP-GILEAD-2018-0355022

PATIENT
  Age: 72 Year
  Sex: Female

DRUGS (5)
  1. MERISLON [Concomitant]
     Active Substance: BETAHISTINE MESILATE
     Dosage: 6 DF, UNK
     Route: 048
  2. AMLODIPINE [Concomitant]
     Active Substance: AMLODIPINE BESYLATE
     Dosage: 1 DF, UNK
     Route: 048
  3. HARVONI [Suspect]
     Active Substance: LEDIPASVIR\SOFOSBUVIR
     Indication: HEPATIC CIRRHOSIS
     Dosage: UNK
     Route: 065
     Dates: start: 20151014, end: 20160105
  4. URSO [Concomitant]
     Active Substance: URSODIOL
     Dosage: 3 DF, UNK
     Route: 048
  5. OMEPRAL                            /00661201/ [Concomitant]
     Active Substance: OMEPRAZOLE
     Dosage: 1 DF, UNK
     Route: 048

REACTIONS (3)
  - Hepatitis C [Recovering/Resolving]
  - Genotype drug resistance test positive [Unknown]
  - Drug ineffective [Recovering/Resolving]

NARRATIVE: CASE EVENT DATE: 20160202
